FAERS Safety Report 6252253-5 (Version None)
Quarter: 2009Q2

REPORT INFORMATION
  Report Type: 
  Country: None (occurrence: None)
  Receive Date: 20090629
  Receipt Date: 20090528
  Transmission Date: 20091009
  Serious: No
  Sender: FDA-Public Use
  Company Number: F03200900058

PATIENT
  Age: 21 Year

DRUGS (8)
  1. OFORTA - (FLUDARABINE PHOSPHATE) [Suspect]
     Indication: ANTIFUNGAL PROPHYLAXIS
  2. OFORTA - (FLUDARABINE PHOSPHATE) [Suspect]
     Indication: BONE MARROW CONDITIONING REGIMEN
  3. OFORTA - (FLUDARABINE PHOSPHATE) [Suspect]
     Indication: STEM CELL TRANSPLANT
  4. (ALEMTUZUMAB) [Suspect]
     Indication: STEM CELL TRANSPLANT
  5. (BUSULPHAN) [Suspect]
     Indication: STEM CELL TRANSPLANT
  6. COTRIM [Suspect]
     Indication: PROPHYLAXIS
  7. CYCLOSPORINE [Suspect]
     Indication: PROPHYLAXIS AGAINST GRAFT VERSUS HOST DISEASE
  8. ITRACONAZOLE [Suspect]
     Indication: PROPHYLAXIS AGAINST GRAFT VERSUS HOST DISEASE

REACTIONS (5)
  - ACUTE GRAFT VERSUS HOST DISEASE IN SKIN [None]
  - DRUG INEFFECTIVE FOR UNAPPROVED INDICATION [None]
  - FORCED EXPIRATORY VOLUME DECREASED [None]
  - STEM CELL TRANSPLANT [None]
  - VITAL CAPACITY DECREASED [None]
